FAERS Safety Report 18629688 (Version 1)
Quarter: 2020Q4

REPORT INFORMATION
  Report Type: Spontaneous
  Country: MX (occurrence: MX)
  Receive Date: 20201217
  Receipt Date: 20201217
  Transmission Date: 20210114
  Serious: Yes (Other)
  Sender: FDA-Public Use
  Company Number: MX-009507513-2012MEX004145

PATIENT
  Sex: Female
  Weight: 54 kg

DRUGS (1)
  1. INVANZ [Suspect]
     Active Substance: ERTAPENEM SODIUM
     Indication: URINARY TRACT INFECTION
     Dates: start: 20201202, end: 20201207

REACTIONS (5)
  - Product container issue [Unknown]
  - Liquid product physical issue [Unknown]
  - Product quality issue [Unknown]
  - Product colour issue [Unknown]
  - Product dose omission issue [Unknown]
